FAERS Safety Report 12350290 (Version 2)
Quarter: 2016Q2

REPORT INFORMATION
  Report Type: Spontaneous
  Country: US (occurrence: US)
  Receive Date: 20160510
  Receipt Date: 20160516
  Transmission Date: 20160815
  Serious: No
  Sender: FDA-Public Use
  Company Number: US-GLAXOSMITHKLINE-CHPA2016US003304

PATIENT

DRUGS (1)
  1. EXCEDRIN MIGRAINE [Suspect]
     Active Substance: ACETAMINOPHEN\ASPIRIN\CAFFEINE
     Indication: MIGRAINE
     Dosage: 1 TABLET, QD
     Route: 048
     Dates: start: 201602

REACTIONS (5)
  - Product quality issue [Unknown]
  - Incorrect dose administered [Unknown]
  - Foreign body [Unknown]
  - Dizziness [Unknown]
  - Drug ineffective [Unknown]
